FAERS Safety Report 20504619 (Version 1)
Quarter: 2022Q1

REPORT INFORMATION
  Report Type: Spontaneous
  Country: US (occurrence: US)
  Receive Date: 20220223
  Receipt Date: 20220223
  Transmission Date: 20220423
  Serious: Yes (Other)
  Sender: FDA-Public Use
  Company Number: US-NOVOPROD-893573

PATIENT
  Age: 18 Year
  Sex: Male

DRUGS (2)
  1. WEGOVY [Suspect]
     Active Substance: SEMAGLUTIDE
     Dosage: DOSE INCREASE
     Route: 058
     Dates: end: 2022
  2. WEGOVY [Suspect]
     Active Substance: SEMAGLUTIDE
     Indication: Product used for unknown indication
     Dosage: UNK
     Route: 058
     Dates: start: 202201

REACTIONS (4)
  - Lymphoma [Unknown]
  - Cyst [Unknown]
  - Anxiety [Unknown]
  - Illness [Unknown]

NARRATIVE: CASE EVENT DATE: 20220101
